FAERS Safety Report 25340978 (Version 1)
Quarter: 2025Q2

REPORT INFORMATION
  Report Type: Spontaneous
  Country: US (occurrence: None)
  Receive Date: 20250520
  Receipt Date: 20250520
  Transmission Date: 20250717
  Serious: Yes (Hospitalization)
  Sender: FDA-CTU
  Company Number: None

PATIENT
  Age: 77 Year
  Sex: Female

DRUGS (16)
  1. ADEMPAS [Suspect]
     Active Substance: RIOCIGUAT
     Indication: Pulmonary arterial hypertension
     Dosage: FREQUENCY : TWICE A DAY;?
     Route: 048
     Dates: start: 20200923
  2. AMBRISENTAN [Suspect]
     Active Substance: AMBRISENTAN
  3. AMBRISENTAN [Concomitant]
     Active Substance: AMBRISENTAN
  4. LEVOTHYROXINE [Concomitant]
     Active Substance: LEVOTHYROXINE
  5. FUROSEMIDE [Concomitant]
     Active Substance: FUROSEMIDE
  6. AZULFIDINE [Concomitant]
     Active Substance: SULFASALAZINE
  7. ONDANSETRON [Concomitant]
     Active Substance: ONDANSETRON
  8. OXYCODONE [Concomitant]
     Active Substance: OXYCODONE
  9. ATORVASTATIN [Concomitant]
     Active Substance: ATORVASTATIN
  10. FERROUS SULFATE [Concomitant]
     Active Substance: FERROUS SULFATE
  11. VITAMIN C [Concomitant]
     Active Substance: ASCORBIC ACID
  12. OMEPRAZOLE [Concomitant]
     Active Substance: OMEPRAZOLE
  13. ATENOLOL [Concomitant]
     Active Substance: ATENOLOL
  14. BUDESONIDE [Concomitant]
     Active Substance: BUDESONIDE
  15. Ciclopirox top soln [Concomitant]
  16. Nitroglycerin oint [Concomitant]

REACTIONS (3)
  - Gastroenteritis [None]
  - Colitis [None]
  - Abdominal pain [None]

NARRATIVE: CASE EVENT DATE: 20250506
